FAERS Safety Report 26001977 (Version 1)
Quarter: 2025Q4

REPORT INFORMATION
  Report Type: Spontaneous
  Country: US (occurrence: US)
  Receive Date: 20251105
  Receipt Date: 20251105
  Transmission Date: 20260118
  Serious: Yes (Other)
  Sender: NOVO NORDISK
  Company Number: US-NOVOPROD-1553869

PATIENT
  Age: 64 Year
  Sex: Male

DRUGS (2)
  1. NOVOLOG [Suspect]
     Active Substance: INSULIN ASPART
     Indication: Type 2 diabetes mellitus
     Dosage: SLIDING SCALE, STARTED 10-11 YEARS AGO
     Route: 058
  2. LANTUS [Concomitant]
     Active Substance: INSULIN GLARGINE
     Indication: Product used for unknown indication
     Dosage: UNK

REACTIONS (10)
  - Cervical vertebral fracture [Recovered/Resolved]
  - Fall [Recovered/Resolved]
  - Lymphoma [Recovered/Resolved]
  - Myocardial infarction [Recovering/Resolving]
  - Coronary artery occlusion [Recovering/Resolving]
  - Arrhythmia [Recovering/Resolving]
  - Thrombotic microangiopathy [Recovering/Resolving]
  - Carotid artery occlusion [Recovering/Resolving]
  - Eye operation [Unknown]
  - Visual impairment [Recovered/Resolved]

NARRATIVE: CASE EVENT DATE: 20200101
